FAERS Safety Report 10162517 (Version 2)
Quarter: 2014Q2

REPORT INFORMATION
  Report Type: Spontaneous
  Country: US (occurrence: US)
  Receive Date: 20140509
  Receipt Date: 20140509
  Transmission Date: 20141212
  Serious: No
  Sender: FDA-Public Use
  Company Number: US-PFIZER INC-2014015821

PATIENT
  Age: 54 Year
  Sex: Female
  Weight: 104.31 kg

DRUGS (2)
  1. LYRICA [Suspect]
     Indication: FIBROMYALGIA
     Dosage: 100 MG, 2X/DAY
     Route: 048
     Dates: start: 2011, end: 20140503
  2. AZULFIDINE [Concomitant]
     Dosage: 1000 MG (2 TABLETS OF 500MG), 2X/DAY

REACTIONS (9)
  - Malaise [Unknown]
  - Pain [Unknown]
  - Sluggishness [Unknown]
  - Back pain [Unknown]
  - Musculoskeletal pain [Unknown]
  - Bone pain [Unknown]
  - Arthralgia [Unknown]
  - Pain in extremity [Unknown]
  - Activities of daily living impaired [Unknown]
